FAERS Safety Report 5616053-9 (Version None)
Quarter: 2008Q1

REPORT INFORMATION
  Report Type: 
  Country: None (occurrence: None)
  Receive Date: 20080206
  Receipt Date: 20080128
  Transmission Date: 20080703
  Serious: No
  Sender: FDA-Public Use
  Company Number: BR-PFIZER INC-2007098866

PATIENT
  Sex: Female

DRUGS (5)
  1. SILDENAFIL (PAH) [Suspect]
     Indication: CARDIAC DISORDER
     Route: 048
  2. SILDENAFIL (PAH) [Suspect]
     Indication: LUNG DISORDER
  3. DIOVAN [Concomitant]
  4. DIOVAN HCT [Concomitant]
     Route: 048
  5. SERETIDE [Concomitant]
     Route: 048

REACTIONS (1)
  - DRUG INEFFECTIVE [None]
